FAERS Safety Report 13788827 (Version 3)
Quarter: 2017Q4

REPORT INFORMATION
  Report Type: Spontaneous
  Country: US (occurrence: US)
  Receive Date: 20170725
  Receipt Date: 20171121
  Transmission Date: 20180320
  Serious: No
  Sender: FDA-Public Use
  Company Number: US-JNJFOC-20170714171

PATIENT
  Sex: Male

DRUGS (12)
  1. IMBRUVICA [Suspect]
     Active Substance: IBRUTINIB
     Indication: NON-HODGKIN^S LYMPHOMA
     Route: 048
     Dates: start: 20170404, end: 2017
  2. FUROSEMIDE. [Concomitant]
     Active Substance: FUROSEMIDE
  3. MULTIVITAMINS [Concomitant]
     Active Substance: VITAMINS
  4. SIMVASTATIN. [Concomitant]
     Active Substance: SIMVASTATIN
  5. CALCIUM [Concomitant]
     Active Substance: CALCIUM
  6. IMBRUVICA [Suspect]
     Active Substance: IBRUTINIB
     Indication: NON-HODGKIN^S LYMPHOMA
     Route: 048
     Dates: start: 201707, end: 201708
  7. IMBRUVICA [Suspect]
     Active Substance: IBRUTINIB
     Indication: NON-HODGKIN^S LYMPHOMA
     Route: 048
     Dates: start: 20170404, end: 2017
  8. ATENOLOL. [Concomitant]
     Active Substance: ATENOLOL
  9. FINASTERIDE. [Concomitant]
     Active Substance: FINASTERIDE
  10. IMBRUVICA [Suspect]
     Active Substance: IBRUTINIB
     Indication: NON-HODGKIN^S LYMPHOMA
     Route: 048
     Dates: start: 20170911
  11. ALLOPURINOL. [Concomitant]
     Active Substance: ALLOPURINOL
  12. STOOL SOFTENER (DOCUSATE) [Concomitant]
     Active Substance: DOCUSATE

REACTIONS (1)
  - Platelet count decreased [Unknown]
